FAERS Safety Report 8789637 (Version 1)
Quarter: 2012Q4

REPORT INFORMATION
  Report Type: Spontaneous
  Country: US (occurrence: None)
  Receive Date: 20120910
  Receipt Date: 20120910
  Transmission Date: 20130627
  Serious: Yes (Hospitalization)
  Sender: FDA-Public Use
  Company Number: None

PATIENT
  Age: 25 Year
  Sex: Female
  Weight: 75 kg

DRUGS (6)
  1. ETHINYL ESTRADIOL\LEVONORGESTREL [Suspect]
     Indication: ORAL CONTRACEPTIVE
     Route: 048
  2. ALBUTEROL INHALER [Concomitant]
  3. BUPROPION SR [Concomitant]
  4. CLONAZEPAM [Concomitant]
  5. PRAVASTATIN [Concomitant]
  6. SERTRALINE [Concomitant]

REACTIONS (1)
  - Pulmonary embolism [None]
